FAERS Safety Report 5629497-6 (Version None)
Quarter: 2008Q1

REPORT INFORMATION
  Report Type: 
  Country: None (occurrence: None)
  Receive Date: 20080215
  Receipt Date: 20080215
  Transmission Date: 20080703
  Serious: Yes (Hospitalization)
  Sender: FDA-Public Use
  Company Number: None

PATIENT
  Age: 47 Year
  Sex: Male
  Weight: 123.3784 kg

DRUGS (2)
  1. HUMIRA [Suspect]
     Indication: RHEUMATOID ARTHRITIS
     Dosage: 40MG  Q2WEEK  SC
     Route: 058
     Dates: start: 20060101, end: 20071101
  2. LEFLUNOMIDE [Suspect]
     Dosage: 10MG QD  PO
     Route: 048
     Dates: start: 20070101

REACTIONS (6)
  - ASPERGILLOMA [None]
  - DISEASE RECURRENCE [None]
  - EMPYEMA [None]
  - PNEUMOTHORAX [None]
  - PULMONARY CAVITATION [None]
  - UPPER RESPIRATORY TRACT INFECTION [None]
